FAERS Safety Report 4487643-4 (Version None)
Quarter: 2004Q4

REPORT INFORMATION
  Report Type: 
  Country: None (occurrence: None)
  Receive Date: 20041025
  Receipt Date: 20041020
  Transmission Date: 20050328
  Serious: Yes (Hospitalization)
  Sender: FDA-Public Use
  Company Number: ZONI002038

PATIENT
  Age: 52 Year
  Sex: Male

DRUGS (1)
  1. ZONEGRAN [Suspect]
     Dosage: ORAL
     Route: 048

REACTIONS (2)
  - HEPATITIS C [None]
  - WARM TYPE HAEMOLYTIC ANAEMIA [None]
